FAERS Safety Report 17274521 (Version 2)
Quarter: 2020Q1

REPORT INFORMATION
  Report Type: Report from Study
  Country: US (occurrence: US)
  Receive Date: 20200115
  Receipt Date: 20200211
  Transmission Date: 20200409
  Serious: Yes (Death)
  Sender: FDA-Public Use
  Company Number: US-EXELIXIS-CABO-20026661

PATIENT
  Sex: Male

DRUGS (1)
  1. CABOMETYX [Suspect]
     Active Substance: CABOZANTINIB S-MALATE
     Indication: RENAL CANCER
     Dosage: 40 MG, QD
     Route: 048
     Dates: start: 20191018

REACTIONS (2)
  - Malignant neoplasm progression [Fatal]
  - Cardio-respiratory arrest [Fatal]
